FAERS Safety Report 4897041-7 (Version None)
Quarter: 2006Q1

REPORT INFORMATION
  Report Type: 
  Country: None (occurrence: None)
  Receive Date: 20060127
  Receipt Date: 20060120
  Transmission Date: 20060701
  Serious: Yes (Death)
  Sender: FDA-Public Use
  Company Number: 2006011022

PATIENT
  Age: 57 Year
  Sex: Male

DRUGS (2)
  1. AMLODIPINE [Suspect]
     Indication: ILL-DEFINED DISORDER
     Dosage: UNKNOWN, ORAL
     Route: 048
     Dates: start: 20030101, end: 20040701
  2. URINORM (BENZBROMARONE) [Suspect]
     Indication: ILL-DEFINED DISORDER
     Dosage: UNKNOWN, ORAL
     Route: 048

REACTIONS (1)
  - TOXIC EPIDERMAL NECROLYSIS [None]
